FAERS Safety Report 14344248 (Version 1)
Quarter: 2018Q1

REPORT INFORMATION
  Report Type: Spontaneous
  Country: US (occurrence: US)
  Receive Date: 20180102
  Receipt Date: 20180102
  Transmission Date: 20180509
  Serious: Yes (Death, Other)
  Sender: FDA-Public Use
  Company Number: US-009507513-1712USA014618

PATIENT
  Age: 40 Year
  Sex: Male

DRUGS (9)
  1. COZAAR [Suspect]
     Active Substance: LOSARTAN POTASSIUM
     Dosage: UNK
     Route: 048
  2. ACETAMINOPHEN. [Suspect]
     Active Substance: ACETAMINOPHEN
  3. INDOMETHACIN. [Suspect]
     Active Substance: INDOMETHACIN
  4. IBUPROFEN. [Suspect]
     Active Substance: IBUPROFEN
  5. FENOFIBRATE. [Suspect]
     Active Substance: FENOFIBRATE
  6. DOPAMINE [Suspect]
     Active Substance: DOPAMINE\DOPAMINE HYDROCHLORIDE
  7. ZOCOR [Suspect]
     Active Substance: SIMVASTATIN
     Route: 048
  8. HYDROCHLOROTHIAZIDE. [Suspect]
     Active Substance: HYDROCHLOROTHIAZIDE
  9. NOREPINEPHRINE. [Suspect]
     Active Substance: NOREPINEPHRINE

REACTIONS (1)
  - Death [Fatal]
